FAERS Safety Report 20697605 (Version 1)
Quarter: 2022Q2

REPORT INFORMATION
  Report Type: Spontaneous
  Country: AU (occurrence: AU)
  Receive Date: 20220411
  Receipt Date: 20220411
  Transmission Date: 20220721
  Serious: Yes (Life-Threatening, Hospitalization, Other)
  Sender: FDA-Public Use
  Company Number: AU-ALLERGAN-2211450US

PATIENT
  Sex: Female

DRUGS (5)
  1. MEMANTINE [Interacting]
     Active Substance: MEMANTINE
     Indication: Product used for unknown indication
     Dosage: 20 MG, QD
  2. CYMBALTA [Interacting]
     Active Substance: DULOXETINE HYDROCHLORIDE
     Indication: Product used for unknown indication
     Dosage: 60 MG, QD
     Route: 048
     Dates: start: 20211130
  3. CYMBALTA [Interacting]
     Active Substance: DULOXETINE HYDROCHLORIDE
     Dosage: 90 MG, QD
     Route: 048
     Dates: start: 202110, end: 20211127
  4. CYMBALTA [Interacting]
     Active Substance: DULOXETINE HYDROCHLORIDE
     Dosage: 120 MG, QD
     Route: 048
  5. CYMBALTA [Interacting]
     Active Substance: DULOXETINE HYDROCHLORIDE
     Dosage: 60 MG, QD
     Route: 048

REACTIONS (7)
  - Blood sodium decreased [Recovered/Resolved]
  - Cognitive disorder [Unknown]
  - Malaise [Unknown]
  - Memory impairment [Unknown]
  - Withdrawal syndrome [Unknown]
  - Drug interaction [Unknown]
  - Confusional state [Unknown]

NARRATIVE: CASE EVENT DATE: 20211127
